FAERS Safety Report 9039621 (Version 1)
Quarter: 2013Q1

REPORT INFORMATION
  Report Type: Report from Study
  Country: US (occurrence: US)
  Receive Date: 20130129
  Receipt Date: 20130129
  Transmission Date: 20140127
  Serious: No
  Sender: FDA-Public Use
  Company Number: US-ABBOTT-12P-163-0942688-00

PATIENT
  Sex: Female
  Weight: 88.53 kg

DRUGS (13)
  1. HUMIRA 40 MG/0.8 ML PEN [Suspect]
     Indication: RHEUMATOID ARTHRITIS
     Dates: start: 201111, end: 201201
  2. HUMIRA 40 MG/0.8 ML PEN [Suspect]
     Dates: start: 201202
  3. COREG [Concomitant]
     Indication: HYPERTENSION
  4. MIRAPEX [Concomitant]
     Indication: SLEEP DISORDER THERAPY
  5. FOLIC ACID [Concomitant]
     Indication: SUPPLEMENTATION THERAPY
  6. METHOTREXATE [Concomitant]
     Indication: RHEUMATOID ARTHRITIS
  7. LYRICA [Concomitant]
     Indication: RHEUMATOID ARTHRITIS
  8. COLESTID [Concomitant]
     Indication: OESOPHAGEAL SPASM
  9. COLESTID [Concomitant]
     Indication: DIARRHOEA
  10. EVOXAC [Concomitant]
     Indication: DRY MOUTH
  11. VITAMIN B12 [Concomitant]
     Indication: VITAMIN SUPPLEMENTATION
  12. VITAMIN D [Concomitant]
     Indication: VITAMIN SUPPLEMENTATION
  13. PRILOSEC [Concomitant]
     Indication: CHOLECYSTECTOMY

REACTIONS (2)
  - Respiratory tract infection [Recovered/Resolved]
  - Muscle spasms [Not Recovered/Not Resolved]
